FAERS Safety Report 19258389 (Version 1)
Quarter: 2021Q2

REPORT INFORMATION
  Report Type: Spontaneous
  Country: FR (occurrence: FR)
  Receive Date: 20210514
  Receipt Date: 20210514
  Transmission Date: 20210717
  Serious: Yes (Life-Threatening)
  Sender: FDA-Public Use
  Company Number: FR-ACCORD-224918

PATIENT
  Age: 57 Year
  Sex: Female
  Weight: 50.9 kg

DRUGS (14)
  1. POTASSIUM (CHLORURE DE) [Suspect]
     Active Substance: POTASSIUM CHLORIDE
     Indication: PRODUCT USED FOR UNKNOWN INDICATION
     Route: 048
     Dates: end: 20210212
  2. MEPOLIZUMAB [Concomitant]
     Active Substance: MEPOLIZUMAB
  3. FORMOTEROL/FORMOTEROL FUMARATE [Suspect]
     Active Substance: FORMOTEROL FUMARATE
     Indication: ASTHMA
     Route: 002
     Dates: start: 2019, end: 20210212
  4. CLORAZEPIC ACID [Suspect]
     Active Substance: CLORAZEPIC ACID
     Indication: PERSONALITY DISORDER
     Route: 048
     Dates: end: 20210212
  5. BECLOMETHASONE (DIPROPIONATE DE) [Suspect]
     Active Substance: BECLOMETHASONE DIPROPIONATE
     Indication: ASTHMA
     Route: 002
     Dates: start: 2019, end: 20210212
  6. ALIMEMAZINE [Suspect]
     Active Substance: TRIMEPRAZINE
     Indication: PERSONALITY DISORDER
     Route: 048
     Dates: end: 20210212
  7. LOXAPINE. [Suspect]
     Active Substance: LOXAPINE
     Indication: PERSONALITY DISORDER
     Route: 048
     Dates: end: 20210212
  8. COVID?19 VACCINE NOS. [Suspect]
     Active Substance: COVID-19 VACCINE NOS
     Indication: COVID-19 IMMUNISATION
     Dosage: LEFT DELTOID
     Route: 030
     Dates: start: 20210211, end: 20210211
  9. BICARBONATE DE SODIUM/CHLORURE DE SODIUM/CHLORURE DE POTASSIUM/E 336/POTASSIUM (CHLORURE DE)/SODIUM (POLYETHYLENE GLYCOL 3350\POTASSIUM CHLORIDE\SODIUM BICARBONATE\SODIUM CHLORIDE) [Suspect]
     Active Substance: POLYETHYLENE GLYCOL 3350\POTASSIUM CHLORIDE\SODIUM BICARBONATE\SODIUM CHLORIDE
     Indication: PRODUCT USED FOR UNKNOWN INDICATION
     Route: 048
     Dates: end: 20210112
  10. CLOMIPRAMINE/CLOMIPRAMINE HYDROCHLORIDE [Suspect]
     Active Substance: CLOMIPRAMINE
     Indication: PERSONALITY DISORDER
     Route: 048
     Dates: end: 20210212
  11. PREDNISONE. [Suspect]
     Active Substance: PREDNISONE
     Indication: ASTHMA
     Route: 048
     Dates: start: 20210210, end: 20210212
  12. ZOPICLONE [Suspect]
     Active Substance: ZOPICLONE
     Indication: INSOMNIA
     Route: 048
     Dates: end: 20210212
  13. CALCIUM CARBONATE/COLECALCIFEROL [Suspect]
     Active Substance: CALCIUM CARBONATE\CHOLECALCIFEROL
     Indication: PRODUCT USED FOR UNKNOWN INDICATION
     Route: 048
     Dates: end: 20210212
  14. FLUOXETINE [Suspect]
     Active Substance: FLUOXETINE HYDROCHLORIDE
     Indication: DEPRESSION
     Route: 048
     Dates: end: 20210212

REACTIONS (4)
  - Pneumonia aspiration [Recovered/Resolved]
  - Cardio-respiratory arrest [Recovered/Resolved]
  - Rebound effect [Recovered/Resolved]
  - Bronchospasm [Recovered/Resolved]

NARRATIVE: CASE EVENT DATE: 20210211
